FAERS Safety Report 21486924 (Version 2)
Quarter: 2022Q4

REPORT INFORMATION
  Report Type: Spontaneous
  Country: CO (occurrence: CO)
  Receive Date: 20221020
  Receipt Date: 20221104
  Transmission Date: 20230113
  Serious: Yes (Hospitalization, Other)
  Sender: FDA-Public Use
  Company Number: CO-AMGEN-COLSP2022175673

PATIENT
  Age: 56 Year
  Sex: Female

DRUGS (5)
  1. MVASI [Suspect]
     Active Substance: BEVACIZUMAB-AWWB
     Indication: Ovarian cancer
     Dosage: 1350 MILLIGRAM, QD
     Route: 040
     Dates: start: 2022
  2. PACLITAXEL [Concomitant]
     Active Substance: PACLITAXEL
     Indication: Ovarian cancer
     Dosage: 165.6 MILLIGRAM, QD
     Route: 040
     Dates: start: 20220928
  3. ONDANSETRON [Concomitant]
     Active Substance: ONDANSETRON
     Indication: Ovarian cancer
     Dosage: 8 MILLIGRAM, QD
     Route: 040
     Dates: start: 20220928
  4. DEXAMETHASONE PHOSPHATE [Concomitant]
     Active Substance: DEXAMETHASONE PHOSPHATE
     Indication: Ovarian cancer
     Dosage: 8 MILLIGRAM, QD
     Route: 040
     Dates: start: 20220928
  5. CHLORPHENIRAMINE MALEATE [Concomitant]
     Active Substance: CHLORPHENIRAMINE MALEATE
     Indication: Ovarian cancer
     Dosage: 40 MILLIGRAM, 1 TABLET EVERY 24 HOURS FOR THREE DAYS
     Route: 048
     Dates: start: 20220928

REACTIONS (7)
  - Chronic kidney disease [Recovered/Resolved]
  - Ovarian cancer [Unknown]
  - Pruritus [Not Recovered/Not Resolved]
  - Myalgia [Not Recovered/Not Resolved]
  - Epistaxis [Recovered/Resolved]
  - Decreased appetite [Not Recovered/Not Resolved]
  - Off label use [Unknown]

NARRATIVE: CASE EVENT DATE: 20220101
